FAERS Safety Report 22129544 (Version 2)
Quarter: 2023Q2

REPORT INFORMATION
  Report Type: Spontaneous
  Country: US (occurrence: US)
  Receive Date: 20230323
  Receipt Date: 20230608
  Transmission Date: 20230721
  Serious: Yes (Other)
  Sender: FDA-Public Use
  Company Number: US-GLAXOSMITHKLINE-US2023AMR042029

PATIENT

DRUGS (2)
  1. VENTOLIN HFA [Suspect]
     Active Substance: ALBUTEROL SULFATE
     Indication: Productive cough
     Dosage: UNK
  2. FLUIMUCIL [Concomitant]
     Active Substance: ACETYLCYSTEINE
     Indication: Productive cough
     Dosage: 200 MG

REACTIONS (6)
  - Myocardial infarction [Unknown]
  - Palpitations [Unknown]
  - Mucosal dryness [Unknown]
  - Sneezing [Unknown]
  - Cough [Unknown]
  - Expired product administered [Unknown]

NARRATIVE: CASE EVENT DATE: 20080101
